FAERS Safety Report 9146516 (Version 1)
Quarter: 2013Q1

REPORT INFORMATION
  Report Type: Spontaneous
  Country: GB (occurrence: GB)
  Receive Date: 20130307
  Receipt Date: 20130307
  Transmission Date: 20140127
  Serious: Yes (Life-Threatening, Disabling, Other)
  Sender: FDA-Public Use
  Company Number: GB-PFIZER INC-2012SP003417

PATIENT
  Age: 60 Year
  Sex: Female

DRUGS (3)
  1. FLUOROURACIL [Suspect]
     Dosage: 120 MG, EVERY 3 WEEKS
     Route: 040
     Dates: start: 20120614
  2. EPIRUBICIN [Suspect]
     Dosage: 1000 MG, EVERY 3 WEEKS
     Route: 040
     Dates: start: 20120614
  3. CYCLOPHOSPHAMIDE [Suspect]
     Indication: BREAST CANCER
     Dosage: 1000 MG, EVERY 3 WEEKS
     Route: 040
     Dates: start: 20120614

REACTIONS (1)
  - Pulmonary fibrosis [Unknown]
